FAERS Safety Report 9642730 (Version 1)
Quarter: 2013Q4

REPORT INFORMATION
  Report Type: Spontaneous
  Country: DE (occurrence: DE)
  Receive Date: 20131024
  Receipt Date: 20131024
  Transmission Date: 20140711
  Serious: Yes (Other)
  Sender: FDA-Public Use
  Company Number: DE-UCBSA-100099

PATIENT
  Sex: 0

DRUGS (1)
  1. VIMPAT [Suspect]
     Dosage: APPROXIMATELY 300MG

REACTIONS (1)
  - Status epilepticus [Recovered/Resolved]
